FAERS Safety Report 26055220 (Version 1)
Quarter: 2025Q4

REPORT INFORMATION
  Report Type: Spontaneous
  Country: US (occurrence: US)
  Receive Date: 20251117
  Receipt Date: 20251117
  Transmission Date: 20260117
  Serious: Yes (Other)
  Sender: CENTRAL ADMIXTURE PHARMACY SERVICES, INC.
  Company Number: US-Central Admixture Pharmacy Services, Inc.-2188725

PATIENT

DRUGS (1)
  1. ANHYDROUS DEXTROSE\CITRIC ACID MONOHYDRATE\POTASSIUM CHLORIDE\SODIUM C [Suspect]
     Active Substance: ANHYDROUS DEXTROSE\CITRIC ACID MONOHYDRATE\POTASSIUM CHLORIDE\SODIUM CHLORIDE\SODIUM PHOSPHATE, MONO
     Indication: Cardiac operation
     Dates: start: 20251106, end: 20251106

REACTIONS (1)
  - Drug ineffective [Unknown]

NARRATIVE: CASE EVENT DATE: 20251106
